FAERS Safety Report 5379045-3 (Version None)
Quarter: 2007Q3

REPORT INFORMATION
  Report Type: 
  Country: None (occurrence: None)
  Receive Date: 20070705
  Receipt Date: 20070625
  Transmission Date: 20080115
  Serious: Yes (Death, Life-Threatening)
  Sender: FDA-Public Use
  Company Number: FR-ROCHE-500501

PATIENT
  Age: 72 Year
  Sex: Male

DRUGS (5)
  1. ROCEPHIN [Suspect]
     Indication: DRUG USE FOR UNKNOWN INDICATION
     Route: 042
     Dates: start: 20070216, end: 20070220
  2. ROVALCYTE [Suspect]
     Indication: CYTOMEGALOVIRUS COLITIS
     Route: 048
     Dates: start: 20070215, end: 20070227
  3. TRIFLUCAN [Suspect]
     Route: 048
     Dates: start: 20070208, end: 20070227
  4. CIFLOX [Suspect]
     Indication: DRUG USE FOR UNKNOWN INDICATION
     Route: 048
     Dates: start: 20070216, end: 20070223
  5. LOVENOX [Suspect]
     Indication: DRUG USE FOR UNKNOWN INDICATION
     Route: 058
     Dates: start: 20070214, end: 20070222

REACTIONS (2)
  - DEATH [None]
  - THROMBOCYTOPENIA [None]
